FAERS Safety Report 14325548 (Version 3)
Quarter: 2018Q4

REPORT INFORMATION
  Report Type: Spontaneous
  Country: SK (occurrence: SK)
  Receive Date: 20171226
  Receipt Date: 20181218
  Transmission Date: 20190204
  Serious: Yes (Hospitalization)
  Sender: FDA-Public Use
  Company Number: PHHY2017SK192833

PATIENT
  Age: 56 Year
  Sex: Male

DRUGS (2)
  1. ACETYLSALICYLIC ACID [Suspect]
     Active Substance: ASPIRIN
     Indication: ANTIPLATELET THERAPY
     Dosage: UNK
     Route: 048
  2. CLOPIDOGREL [Concomitant]
     Active Substance: CLOPIDOGREL BISULFATE
     Indication: ANTIPLATELET THERAPY
     Dosage: UNK
     Route: 065

REACTIONS (8)
  - Syncope [Recovering/Resolving]
  - Cardio-respiratory distress [Recovering/Resolving]
  - Acute respiratory failure [Recovered/Resolved]
  - Condition aggravated [Unknown]
  - Altered state of consciousness [Recovering/Resolving]
  - Asthma [Recovering/Resolving]
  - Dyspnoea [Recovered/Resolved]
  - Respiratory failure [Recovered/Resolved]
